FAERS Safety Report 6149862-0 (Version None)
Quarter: 2009Q2

REPORT INFORMATION
  Report Type: 
  Country: None (occurrence: None)
  Receive Date: 20090409
  Receipt Date: 20090403
  Transmission Date: 20091009
  Serious: Yes (Life-Threatening, Hospitalization)
  Sender: FDA-Public Use
  Company Number: JP-PFIZER INC-2009172628

PATIENT

DRUGS (11)
  1. TOPOTECIN [Suspect]
     Indication: GASTRIC CANCER
     Dosage: 80 MG/M2, WEEKLY INTERMITTENT
     Route: 041
     Dates: start: 20090113, end: 20090127
  2. CRAVIT [Suspect]
     Dosage: 400 MG (200 MG), 2X/DAY
     Route: 048
     Dates: start: 20090202, end: 20090209
  3. TAKEPRON [Concomitant]
     Dosage: 30 MG, 1X/DAY
     Route: 048
     Dates: start: 20080321
  4. ENSURE [Concomitant]
     Dosage: QUANTITY OF ONCE: 250
     Route: 048
     Dates: start: 20081217
  5. BIOFERMIN [Concomitant]
     Dosage: 1 G, 3X/DAY
     Route: 048
     Dates: start: 20081203
  6. SUCRALFATE [Concomitant]
     Dosage: 1 G, 3X/DAY
     Route: 048
     Dates: start: 20081203
  7. ALBUMIN TANNATE [Concomitant]
     Dosage: 1 G, 3X/DAY
     Route: 048
     Dates: start: 20081203
  8. SODIUM CHLORIDE [Concomitant]
     Dosage: 2 G, 3X/DAY
     Route: 048
     Dates: start: 20081203
  9. VANCOMYCIN HYDROCHLORIDE [Concomitant]
     Dosage: 125 MG, 4X/DAY
     Route: 048
     Dates: start: 20090209, end: 20090223
  10. METRONIDAZOLE [Concomitant]
     Dosage: 500 MG, 3X/DAY
     Route: 048
     Dates: start: 20090213, end: 20090226
  11. METRONIDAZOLE [Concomitant]
     Dosage: 500 MG, 3X/DAY
     Route: 048
     Dates: start: 20090311, end: 20090325

REACTIONS (2)
  - DIARRHOEA [None]
  - PSEUDOMEMBRANOUS COLITIS [None]
